FAERS Safety Report 5274846-4 (Version None)
Quarter: 2007Q1

REPORT INFORMATION
  Report Type: 
  Country: None (occurrence: None)
  Receive Date: 20061208
  Receipt Date: 20051121
  Transmission Date: 20070707
  Serious: Yes (Hospitalization)
  Sender: FDA-Public Use
  Company Number: 2005UW17326

PATIENT

DRUGS (1)
  1. CRESTOR [Suspect]
     Dosage: 40 MG QD PO
     Route: 048

REACTIONS (2)
  - MYOSITIS [None]
  - RENAL FAILURE CHRONIC [None]
